FAERS Safety Report 5158029-4 (Version None)
Quarter: 2006Q4

REPORT INFORMATION
  Report Type: 
  Country: None (occurrence: None)
  Receive Date: 20061116
  Receipt Date: 20061104
  Transmission Date: 20070319
  Serious: Yes (Other)
  Sender: FDA-Public Use
  Company Number: 2006135673

PATIENT
  Age: 55 Year
  Sex: Male

DRUGS (2)
  1. ATORVASTATIN CALCIUM [Suspect]
     Dosage: 20 MG, ORAL
     Route: 048
     Dates: start: 20060101
  2. TERBINAFINE [Concomitant]

REACTIONS (7)
  - AGEUSIA [None]
  - ANOREXIA [None]
  - ARTHRALGIA [None]
  - DRUG INTERACTION [None]
  - DYSPNOEA [None]
  - PYREXIA [None]
  - RESPIRATORY DISORDER [None]
